FAERS Safety Report 9594033 (Version 1)
Quarter: 2013Q4

REPORT INFORMATION
  Report Type: Spontaneous
  Country: BR (occurrence: BR)
  Receive Date: 20131004
  Receipt Date: 20131004
  Transmission Date: 20140711
  Serious: Yes (Other)
  Sender: FDA-Public Use
  Company Number: BR-ELI_LILLY_AND_COMPANY-BR201309008549

PATIENT
  Age: 64 Year
  Sex: Female
  Weight: 70 kg

DRUGS (8)
  1. HUMALOG [Suspect]
     Indication: TYPE 2 DIABETES MELLITUS
     Dosage: 5 IU, EACH MORNING
     Route: 058
  2. HUMALOG [Suspect]
     Dosage: 7 IU, OTHER
     Route: 058
  3. HUMALOG [Suspect]
     Dosage: UNK, EACH EVENING
     Route: 058
  4. HUMALOG [Suspect]
     Dosage: 5 IU, EACH MORNING
     Route: 058
  5. HUMALOG [Suspect]
     Dosage: 7 IU, OTHER
     Route: 058
  6. HUMALOG [Suspect]
     Dosage: UNK, EACH EVENING
     Route: 058
  7. GLUCOSAMINE SULFATE [Concomitant]
     Indication: DIABETIC NEUROPATHY
     Dosage: UNK, UNKNOWN
     Route: 065
  8. LANTUS [Concomitant]
     Dosage: UNK, UNKNOWN
     Route: 065

REACTIONS (3)
  - Breast cancer [Unknown]
  - Blood glucose increased [Recovered/Resolved]
  - Blood glucose decreased [Unknown]
